FAERS Safety Report 7799528-6 (Version None)
Quarter: 2011Q4

REPORT INFORMATION
  Report Type: 
  Country: None (occurrence: None)
  Receive Date: 20111006
  Receipt Date: 20111006
  Transmission Date: 20120403
  Serious: No
  Sender: FDA-Public Use
  Company Number: None

PATIENT
  Age: 35 Year
  Sex: Female
  Weight: 58.967 kg

DRUGS (1)
  1. SULFAMETHOXAZOLE AND TRIMETHOPRIM [Suspect]
     Indication: ACNE
     Dosage: 1 TAB
     Route: 048
     Dates: start: 20110930, end: 20111004

REACTIONS (2)
  - DEPRESSION [None]
  - INFLUENZA LIKE ILLNESS [None]
